FAERS Safety Report 4692635-6 (Version None)
Quarter: 2005Q2

REPORT INFORMATION
  Report Type: 
  Country: None (occurrence: None)
  Receive Date: 20050617
  Receipt Date: 20050606
  Transmission Date: 20051028
  Serious: Yes (Disabling)
  Sender: FDA-Public Use
  Company Number: US-MERCK-0506USA01076

PATIENT
  Age: 72 Year
  Sex: Male
  Weight: 85 kg

DRUGS (2)
  1. VIOXX [Suspect]
     Indication: SHOULDER PAIN
     Route: 048
     Dates: start: 20040301, end: 20040901
  2. VIOXX [Suspect]
     Indication: NECK PAIN
     Route: 048
     Dates: start: 20040301, end: 20040901

REACTIONS (1)
  - CEREBROVASCULAR ACCIDENT [None]
